FAERS Safety Report 14962944 (Version 1)
Quarter: 2018Q2

REPORT INFORMATION
  Report Type: Spontaneous
  Country: IN (occurrence: IN)
  Receive Date: 20180601
  Receipt Date: 20180601
  Transmission Date: 20180711
  Serious: Yes (Hospitalization)
  Sender: FDA-Public Use
  Company Number: IN-NOVAST LABORATORIES, LTD-IN-2018NOV000216

PATIENT
  Age: 34 Year
  Sex: Female

DRUGS (7)
  1. SODIUM HYDROGEN DIVALPROATE [Concomitant]
     Indication: BIPOLAR DISORDER
     Dosage: UNK, TAPERED
  2. QUETIAPINE FUMARATE. [Suspect]
     Active Substance: QUETIAPINE FUMARATE
     Indication: BIPOLAR DISORDER
     Dosage: UNK
  3. QUETIAPINE FUMARATE. [Suspect]
     Active Substance: QUETIAPINE FUMARATE
     Dosage: UNK, RESTARTED
  4. LITHIUM. [Concomitant]
     Active Substance: LITHIUM
     Indication: BIPOLAR DISORDER
     Dosage: UNK, TAPERED
  5. LORAZEPAM. [Concomitant]
     Active Substance: LORAZEPAM
     Indication: BIPOLAR DISORDER
     Dosage: UNK
  6. LITHIUM. [Concomitant]
     Active Substance: LITHIUM
     Dosage: UNK, RESTARTED
  7. SODIUM HYDROGEN DIVALPROATE [Concomitant]
     Dosage: UNK, RESTARTED

REACTIONS (1)
  - Drug-induced liver injury [Recovered/Resolved]
